FAERS Safety Report 7864380-7 (Version None)
Quarter: 2011Q4

REPORT INFORMATION
  Report Type: 
  Country: None (occurrence: None)
  Receive Date: 20111028
  Receipt Date: 20111019
  Transmission Date: 20120403
  Serious: Yes (Hospitalization)
  Sender: FDA-Public Use
  Company Number: US-CELGENEUS-163-21880-11093257

PATIENT
  Sex: Female

DRUGS (8)
  1. METOPROLOL TARTRATE [Concomitant]
     Route: 065
  2. AMLODIPINE [Concomitant]
     Route: 065
  3. DEXAMETHASONE [Concomitant]
     Route: 065
  4. FENOFIBRATE [Concomitant]
     Route: 065
  5. REVLIMID [Suspect]
     Dosage: 15 MILLIGRAM
     Route: 048
     Dates: start: 20111001
  6. CLONIDINE [Concomitant]
     Route: 065
  7. METHIMAZOLE [Concomitant]
     Route: 065
  8. GABAPENTIN [Concomitant]
     Route: 065

REACTIONS (2)
  - NAUSEA [None]
  - ABDOMINAL SYMPTOM [None]
